FAERS Safety Report 17846917 (Version 2)
Quarter: 2020Q2

REPORT INFORMATION
  Report Type: Spontaneous
  Country: US (occurrence: US)
  Receive Date: 20200601
  Receipt Date: 20200615
  Transmission Date: 20200714
  Serious: Yes (Death)
  Sender: FDA-Public Use
  Company Number: US-BAYER-2020-100464

PATIENT
  Age: 78 Year
  Sex: Female
  Weight: 54.42 kg

DRUGS (5)
  1. VITAMIN A [RETINOL] [Concomitant]
     Active Substance: RETINOL
  2. VITAMIN C [Concomitant]
     Active Substance: ASCORBIC ACID
  3. ZINC. [Concomitant]
     Active Substance: ZINC
  4. LONSURF [Suspect]
     Active Substance: TIPIRACIL HYDROCHLORIDE\TRIFLURIDINE
     Indication: COLORECTAL CANCER METASTATIC
     Dosage: DAILY DOSE 55 MG
     Route: 048
     Dates: start: 20191207
  5. STIVARGA [Suspect]
     Active Substance: REGORAFENIB
     Indication: COLON CANCER

REACTIONS (5)
  - Muscular weakness [None]
  - Malaise [None]
  - Colorectal cancer metastatic [Fatal]
  - Asthenia [None]
  - Prescribed underdose [None]

NARRATIVE: CASE EVENT DATE: 202003
